FAERS Safety Report 17734315 (Version 2)
Quarter: 2020Q2

REPORT INFORMATION
  Report Type: Report from Study
  Country: CA (occurrence: CA)
  Receive Date: 20200501
  Receipt Date: 20200504
  Transmission Date: 20200714
  Serious: Yes (Other)
  Sender: FDA-Public Use
  Company Number: CA-ROCHE-2190034

PATIENT
  Age: 33 Year
  Sex: Female

DRUGS (2)
  1. OCREVUS [Suspect]
     Active Substance: OCRELIZUMAB
     Indication: RELAPSING-REMITTING MULTIPLE SCLEROSIS
     Dosage: THEN 600MG IV  EVERY 6 MONTHS
     Route: 042
     Dates: start: 20180912
  2. PREDNISONE. [Concomitant]
     Active Substance: PREDNISONE
     Route: 065

REACTIONS (6)
  - Infusion related reaction [Recovering/Resolving]
  - Hot flush [Recovering/Resolving]
  - Rhinorrhoea [Recovered/Resolved]
  - Pneumonia [Recovering/Resolving]
  - Cough [Recovering/Resolving]
  - Immunodeficiency [Not Recovered/Not Resolved]

NARRATIVE: CASE EVENT DATE: 20180912
